FAERS Safety Report 16769488 (Version 1)
Quarter: 2019Q3

REPORT INFORMATION
  Report Type: Spontaneous
  Country: CA (occurrence: CA)
  Receive Date: 20190903
  Receipt Date: 20190903
  Transmission Date: 20191005
  Serious: Yes (Hospitalization)
  Sender: FDA-Public Use
  Company Number: CA-HLSUS-2019-CA-001013

PATIENT
  Age: 70 Year
  Sex: Female

DRUGS (8)
  1. AMANTADINE. [Suspect]
     Active Substance: AMANTADINE HYDROCHLORIDE
     Indication: PSYCHOTIC DISORDER
     Dosage: 300MG 1 EVERY 1 DAY
     Route: 065
  2. QUETIAPINE. [Suspect]
     Active Substance: QUETIAPINE
     Indication: PSYCHOTIC DISORDER
     Dosage: 12.5MG 1 EVERY 1 DAY
     Route: 065
  3. CLOZAPINE. [Suspect]
     Active Substance: CLOZAPINE
     Indication: PSYCHOTIC DISORDER
     Dosage: 37.5MG 1 EVERY 1 DAY
     Route: 065
  4. FLUDROCORTISONE [Suspect]
     Active Substance: FLUDROCORTISONE
     Indication: PSYCHOTIC DISORDER
     Dosage: 0.1MG 1 EVERY 1 DAY
     Route: 065
  5. ENTACAPONE. [Suspect]
     Active Substance: ENTACAPONE
     Indication: PARKINSON^S DISEASE
     Dosage: 1000MG 1 EVERY 1 DAY
     Route: 065
  6. PRAMIPEXOLE. [Suspect]
     Active Substance: PRAMIPEXOLE
     Indication: PARKINSON^S DISEASE
     Dosage: 0.75MG 1 EVERY 1 DAY
     Route: 065
  7. NABILONE [Suspect]
     Active Substance: NABILONE
     Indication: PARKINSON^S DISEASE
     Dosage: 1.0MG
     Route: 048
  8. LEVODOPA-CARBIDOPA 100-25 [Suspect]
     Active Substance: CARBIDOPA\LEVODOPA
     Indication: PARKINSON^S DISEASE
     Dosage: 1000250.0MG 1 EVERY 1 DAY
     Route: 065

REACTIONS (8)
  - Therapeutic response shortened [Recovering/Resolving]
  - Dyskinesia [Recovering/Resolving]
  - Dystonia [Recovering/Resolving]
  - Orthostatic hypotension [Recovering/Resolving]
  - Parkinson^s disease psychosis [Recovering/Resolving]
  - Therapeutic product effect incomplete [Recovering/Resolving]
  - Acute psychosis [Recovering/Resolving]
  - Psychotic disorder [Recovering/Resolving]
